FAERS Safety Report 5357182-7 (Version None)
Quarter: 2007Q2

REPORT INFORMATION
  Report Type: 
  Country: None (occurrence: None)
  Receive Date: 20070614
  Receipt Date: 20070607
  Transmission Date: 20071010
  Serious: Yes (Hospitalization)
  Sender: FDA-Public Use
  Company Number: DE-JNJFOC-20070601147

PATIENT
  Age: 9 Year
  Sex: Female
  Weight: 26.25 kg

DRUGS (17)
  1. DURAGESIC-100 [Suspect]
     Route: 062
  2. DURAGESIC-100 [Suspect]
     Route: 062
  3. DURAGESIC-100 [Suspect]
     Indication: PAIN
     Route: 062
  4. CYCLOPHOSPHAMIDE [Concomitant]
  5. TOPOTECAN [Concomitant]
  6. ETOPOSIDE [Concomitant]
  7. AREDIA [Concomitant]
  8. ZOFRAN [Concomitant]
  9. LACTULOSE [Concomitant]
  10. COTRIM [Concomitant]
  11. IBUPROFEN [Concomitant]
  12. VOMEX [Concomitant]
  13. MACROGOL [Concomitant]
     Dosage: 1-2 BAGS
     Route: 048
  14. BUSCOPAN [Concomitant]
  15. LASIX [Concomitant]
  16. VERGENTAN [Concomitant]
  17. NEUPOGEN [Concomitant]

REACTIONS (3)
  - MEDICATION ERROR [None]
  - NEUTROPENIA [None]
  - PYREXIA [None]
